FAERS Safety Report 6198673-9 (Version None)
Quarter: 2009Q2

REPORT INFORMATION
  Report Type: 
  Country: None (occurrence: None)
  Receive Date: 20090521
  Receipt Date: 20090513
  Transmission Date: 20091009
  Serious: Yes (Death)
  Sender: FDA-Public Use
  Company Number: US-ELI_LILLY_AND_COMPANY-US200905002761

PATIENT
  Sex: Female

DRUGS (11)
  1. CYMBALTA [Suspect]
     Dosage: 60 MG, UNK
  2. CYMBALTA [Suspect]
     Dosage: 90 MG, UNK
  3. CYMBALTA [Suspect]
     Dosage: 120 MG, DAILY (1/D)
  4. LUNESTA [Concomitant]
     Dosage: 3 MG, EACH EVENING
  5. PROTONIX [Concomitant]
     Dosage: 20 MG, DAILY (1/D)
  6. TRAZODIL [Concomitant]
     Dosage: 150 MG, EACH EVENING
  7. SOMA [Concomitant]
     Dosage: 350 MG, AS NEEDED
  8. MORPHINE [Concomitant]
     Dosage: 30 MG, EVERY 4 HRS
  9. LIDODERM [Concomitant]
     Dosage: 1 D/F, AS NEEDED
     Route: 062
  10. DARVOCET [Concomitant]
     Dosage: 100 MG, EVERY 4 HRS
  11. ACYCLOVIR [Concomitant]
     Dosage: 400 MG, DAILY (1/D)

REACTIONS (1)
  - DEATH [None]
